FAERS Safety Report 25919624 (Version 1)
Quarter: 2025Q4

REPORT INFORMATION
  Report Type: Spontaneous
  Country: AU (occurrence: AU)
  Receive Date: 20251014
  Receipt Date: 20251014
  Transmission Date: 20260118
  Serious: Yes (Hospitalization)
  Sender: ADC THERAPEUTICS
  Company Number: AU-BIOVITRUM-2025-AU-013782

PATIENT
  Sex: Male

DRUGS (3)
  1. ZYNLONTA [Suspect]
     Active Substance: LONCASTUXIMAB TESIRINE-LPYL
     Indication: Product used for unknown indication
     Dosage: UNK
     Dates: start: 202503, end: 202503
  2. ZYNLONTA [Suspect]
     Active Substance: LONCASTUXIMAB TESIRINE-LPYL
     Dosage: UNK
  3. ZYNLONTA [Suspect]
     Active Substance: LONCASTUXIMAB TESIRINE-LPYL
     Dosage: UNK
     Dates: start: 202504, end: 202504

REACTIONS (3)
  - Skin exfoliation [Recovered/Resolved]
  - Blister [Recovered/Resolved]
  - Rash maculo-papular [Recovered/Resolved]
